FAERS Safety Report 26062299 (Version 1)
Quarter: 2025Q4

REPORT INFORMATION
  Report Type: Spontaneous
  Country: ZA (occurrence: ZA)
  Receive Date: 20251119
  Receipt Date: 20251119
  Transmission Date: 20260117
  Serious: Yes (Hospitalization)
  Sender: CSL BEHRING
  Company Number: ZA-ROCHE-10000428478

PATIENT
  Sex: Male

DRUGS (1)
  1. MIRCERA [Suspect]
     Active Substance: METHOXY POLYETHYLENE GLYCOL-EPOETIN BETA
     Indication: Product used for unknown indication
     Dosage: 150 ?G
     Route: 065

REACTIONS (2)
  - Infection [Unknown]
  - Sepsis [Unknown]
